FAERS Safety Report 8565290-2 (Version None)
Quarter: 2012Q3

REPORT INFORMATION
  Report Type: 
  Country: None (occurrence: None)
  Receive Date: 20120803
  Receipt Date: 20120730
  Transmission Date: 20120928
  Serious: Yes (Hospitalization, Other)
  Sender: FDA-Public Use
  Company Number: US-ALEXION-A201201398

PATIENT
  Sex: Female
  Weight: 39.5 kg

DRUGS (23)
  1. ADDERALL 5 [Concomitant]
     Dosage: 37.5 MG, QD AT BEDTIME PRN
     Route: 048
  2. MIDODRINE HYDROCHLORIDE [Concomitant]
     Indication: DISTURBANCE IN ATTENTION
     Dosage: PRN TO STAY FOCUSED
  3. PROMETRIUM [Concomitant]
     Dosage: COMPOUNDED DAILY
  4. OMEPRAZOLE [Concomitant]
     Dosage: 40 MG, QD
     Route: 048
  5. LAMICTAL [Concomitant]
     Dosage: 100 MG, QD
     Route: 048
  6. CALCITRIOL [Concomitant]
     Dosage: 5 MG, TID
  7. SYNTHROID [Concomitant]
     Dosage: 75 ?G, QD
     Route: 048
  8. SENSIPAR [Concomitant]
     Dosage: 60 MG, QD
  9. SOLIRIS [Suspect]
     Indication: HAEMOLYTIC URAEMIC SYNDROME
     Dosage: 1200 MG, Q2W
     Route: 042
     Dates: start: 20120314
  10. SEVELAMER CARBONATE [Concomitant]
     Dosage: 1600 MG, TID WITH FOOD
     Route: 048
  11. HEPARIN [Concomitant]
     Dosage: 100 MG/ML, WITH DIALYSIS
  12. CRESTOR [Concomitant]
     Dosage: 10 MG, QD AT BEDTIME
     Route: 048
  13. EPOGEN [Concomitant]
     Dosage: 10000 UT, QW X3 DOSES PER WEEK VIA DIALYSIS ACCESS
     Route: 050
  14. ATIVAN [Concomitant]
     Dosage: 2 MG BEFORE DIALYSIS
     Route: 048
  15. BENADRYL [Concomitant]
     Indication: SLEEP DISORDER
     Dosage: 12.5 MG, PRN QHS
     Route: 048
  16. PHENERGAN HCL [Concomitant]
     Indication: NAUSEA
     Dosage: 6.25 MG, QID PRN
     Route: 048
  17. CARDIZEM [Concomitant]
     Indication: HYPERTENSION
     Dosage: 180 MG, BID
     Route: 048
  18. TRAZODONE HYDROCHLORIDE [Concomitant]
     Dosage: 50 MG, PRN AT BEDTIME
     Route: 048
  19. ADDERALL 5 [Concomitant]
     Dosage: 7.5 MG, QD IN AM PRN
     Route: 048
  20. FEMTRACE ESTRADIOL [Concomitant]
     Dosage: 1.8 MG, QD
     Route: 048
  21. ZANAFLEX [Concomitant]
     Indication: BACK PAIN
     Dosage: 40 MG, PRN
  22. CLONAZEPAM [Concomitant]
     Indication: ANXIETY
     Dosage: 0.5 MG, PRN
     Route: 048
  23. CYMBALTA [Concomitant]
     Dosage: 60 MG, QD
     Route: 048

REACTIONS (4)
  - RENAL FAILURE CHRONIC [None]
  - VAGINAL FISTULA [None]
  - PARATHYROID DISORDER [None]
  - CONDITION AGGRAVATED [None]
